FAERS Safety Report 17997034 (Version 1)
Quarter: 2020Q3

REPORT INFORMATION
  Report Type: Spontaneous
  Country: NL (occurrence: NL)
  Receive Date: 20200709
  Receipt Date: 20200709
  Transmission Date: 20201103
  Serious: Yes (Hospitalization, Other)
  Sender: FDA-Public Use
  Company Number: NL-AUROBINDO-AUR-APL-2020-033611

PATIENT
  Age: 66 Year
  Sex: Female

DRUGS (4)
  1. ATEZOLIZUMAB. [Suspect]
     Active Substance: ATEZOLIZUMAB
     Indication: GASTROOESOPHAGEAL CANCER
     Dosage: 1200 MILLIGRAM, 3 WEEKS (DATE OF MOST RECENT DOSE: 13/MAR/2020)
     Route: 042
     Dates: start: 20191220
  2. OXALIPLATIN CONCENTRATE FOR SOLUTION FOR INFUSION [Suspect]
     Active Substance: OXALIPLATIN
     Indication: GASTROOESOPHAGEAL CANCER
     Dosage: 121 MILLIGRAM, 3 WEEKS (DATE OF MOST RECENT DOSE: 13/MAR/2020)
     Route: 042
     Dates: start: 20200109
  3. CAPECITABINE. [Suspect]
     Active Substance: CAPECITABINE
     Indication: GASTROOESOPHAGEAL CANCER
     Dosage: 1500 MILLIGRAM, ONCE A DAY, DATE OF MOST RECENT DOSE: 27/MAR/2020
     Route: 048
     Dates: start: 20200109
  4. DOCETAXEL CONCENTRATE FOR SOLUTION FOR INFUSION [Suspect]
     Active Substance: DOCETAXEL
     Indication: GASTROOESOPHAGEAL CANCER
     Dosage: 90 MILLIGRAM, 3 WEEK (DATE OF LAST DOSE: 13/MAR/2020)
     Route: 042
     Dates: start: 20200109

REACTIONS (1)
  - Gastric fistula [Recovered/Resolved]

NARRATIVE: CASE EVENT DATE: 20200520
